FAERS Safety Report 14965288 (Version 8)
Quarter: 2019Q3

REPORT INFORMATION
  Report Type: Report from Study
  Country: US (occurrence: US)
  Receive Date: 20180601
  Receipt Date: 20190819
  Transmission Date: 20191004
  Serious: Yes (Hospitalization, Other)
  Sender: FDA-Public Use
  Company Number: US-ACTELION-A-NJ2017-161121

PATIENT
  Age: 21 Year
  Sex: Female
  Weight: 54.42 kg

DRUGS (11)
  1. VELETRI [Suspect]
     Active Substance: EPOPROSTENOL
     Dosage: 34 NG/KG, PER MIN
     Route: 042
  2. VELETRI [Suspect]
     Active Substance: EPOPROSTENOL
     Dosage: 24 NG/KG, PER MIN
     Route: 042
  3. OPSUMIT [Suspect]
     Active Substance: MACITENTAN
     Dosage: 10 MG, QD
     Route: 048
  4. SILDENAFIL CITRATE. [Concomitant]
     Active Substance: SILDENAFIL CITRATE
  5. VELETRI [Suspect]
     Active Substance: EPOPROSTENOL
     Indication: PULMONARY ARTERIAL HYPERTENSION
     Dosage: 36 NG/KG, PER MIN
     Route: 042
  6. OPSUMIT [Suspect]
     Active Substance: MACITENTAN
     Indication: PULMONARY ARTERIAL HYPERTENSION
     Dosage: 10 MG, UNK
     Route: 048
     Dates: start: 201709
  7. REVATIO [Concomitant]
     Active Substance: SILDENAFIL CITRATE
  8. VELETRI [Suspect]
     Active Substance: EPOPROSTENOL
     Dosage: 32 NG/KG, PER MIN
     Route: 042
     Dates: start: 201709
  9. VELETRI [Suspect]
     Active Substance: EPOPROSTENOL
     Dosage: 26 NG/KG, PER MIN
     Route: 042
  10. VELETRI [Suspect]
     Active Substance: EPOPROSTENOL
     Dosage: 20 NG/KG, PER MIN
     Route: 042
  11. COLACE [Concomitant]
     Active Substance: DOCUSATE SODIUM
     Dosage: UNK

REACTIONS (24)
  - Hypotension [Unknown]
  - Pain in jaw [Unknown]
  - Syncope [Recovered/Resolved]
  - Loss of consciousness [Recovered/Resolved]
  - Bronchial artery embolisation [Unknown]
  - Catheter site discharge [Unknown]
  - Catheter site erythema [Unknown]
  - Body temperature increased [Unknown]
  - Dermatitis allergic [Unknown]
  - Catheter management [Unknown]
  - Catheter site swelling [Unknown]
  - Blister [Unknown]
  - Rash [Unknown]
  - Feeling hot [Unknown]
  - Urticaria [Unknown]
  - Faecal volume decreased [Unknown]
  - Catheter site infection [Unknown]
  - Haemoptysis [Recovered/Resolved]
  - Catheter site irritation [Unknown]
  - Skin sensitisation [Unknown]
  - Catheter removal [Recovered/Resolved]
  - Catheter site rash [Unknown]
  - Catheter site pruritus [Unknown]
  - Dizziness [Unknown]

NARRATIVE: CASE EVENT DATE: 20171012
